FAERS Safety Report 15593372 (Version 2)
Quarter: 2018Q4

REPORT INFORMATION
  Report Type: Report from Study
  Country: AR (occurrence: AR)
  Receive Date: 20181106
  Receipt Date: 20181123
  Transmission Date: 20190205
  Serious: Yes (Death, Hospitalization)
  Sender: FDA-Public Use
  Company Number: PHHY2018AR148026

PATIENT
  Sex: Female

DRUGS (1)
  1. ENTRESTO [Suspect]
     Active Substance: SACUBITRIL\VALSARTAN
     Indication: CARDIAC FAILURE
     Dosage: 0.5 DF, (SACUBITRIL 24 MG/ VALSARTAN 26 MG), Q12H
     Route: 065
     Dates: start: 201810

REACTIONS (7)
  - Nephrolithiasis [Fatal]
  - Fluid retention [Fatal]
  - Liver disorder [Fatal]
  - Prescribed underdose [Unknown]
  - Wrong technique in product usage process [Unknown]
  - Renal disorder [Fatal]
  - Cardiac disorder [Fatal]
